FAERS Safety Report 25875596 (Version 1)
Quarter: 2025Q4

REPORT INFORMATION
  Report Type: Spontaneous
  Country: EU (occurrence: EU)
  Receive Date: 20251003
  Receipt Date: 20251003
  Transmission Date: 20260118
  Serious: Yes (Hospitalization, Other)
  Sender: AUROBINDO
  Company Number: EU-AFSSAPS-SE2025000814

PATIENT
  Age: 75 Year
  Sex: Female
  Weight: 96 kg

DRUGS (3)
  1. CLOPIDOGREL [Suspect]
     Active Substance: CLOPIDOGREL BISULFATE
     Indication: Cerebrovascular accident
     Dosage: 75 MILLIGRAM, ONCE A DAY
     Route: 048
     Dates: start: 20250808, end: 20250825
  2. XARELTO [Suspect]
     Active Substance: RIVAROXABAN
     Indication: Surgery
     Dosage: 10 MILLIGRAM, ONCE A DAY
     Route: 048
     Dates: start: 20250804, end: 20250825
  3. KARDEGIC [Interacting]
     Active Substance: ASPIRIN DL-LYSINE
     Indication: Cerebrovascular accident
     Dosage: 75 MILLIGRAM, ONCE A DAY
     Route: 048
     Dates: start: 20250804, end: 20250825

REACTIONS (4)
  - Melaena [Recovered/Resolved]
  - Haemoglobin decreased [Recovering/Resolving]
  - Product prescribing error [Recovered/Resolved]
  - Drug interaction [Recovered/Resolved]

NARRATIVE: CASE EVENT DATE: 20250808
